FAERS Safety Report 7585485-4 (Version None)
Quarter: 2011Q2

REPORT INFORMATION
  Report Type: 
  Country: None (occurrence: None)
  Receive Date: 20110624
  Receipt Date: 20110615
  Transmission Date: 20111010
  Serious: Yes (Hospitalization)
  Sender: FDA-Public Use
  Company Number: 2011SP002010

PATIENT
  Age: 52 Year
  Sex: Female

DRUGS (1)
  1. LUNESTA [Suspect]
     Dosage: 3 MG, 1X
     Dates: start: 20110101, end: 20110101

REACTIONS (1)
  - ANAPHYLACTIC REACTION [None]
